FAERS Safety Report 4942733-4 (Version None)
Quarter: 2006Q1

REPORT INFORMATION
  Report Type: 
  Country: None (occurrence: None)
  Receive Date: 20060314
  Receipt Date: 20060224
  Transmission Date: 20060701
  Serious: Yes (Other)
  Sender: FDA-Public Use
  Company Number: PHEH2006US02631

PATIENT
  Age: 70 Year
  Sex: Female

DRUGS (12)
  1. ZOMETA [Suspect]
     Indication: BREAST CANCER METASTATIC
     Dosage: 4 MG EVERY MONTH
     Dates: start: 20040125, end: 20060130
  2. FEMARA [Concomitant]
     Dosage: 2.5 MG PER DAY
  3. LOTENSIN [Concomitant]
  4. MEGACE [Concomitant]
  5. XELODA [Concomitant]
     Dosage: 2000 MG/DAY
     Dates: start: 20051205
  6. AVASTIN [Concomitant]
  7. FENTANYL CITRATE [Concomitant]
     Route: 062
  8. DOXIL [Concomitant]
     Dosage: UNK, QMO
     Dates: start: 20050711, end: 20051107
  9. TAXOL [Concomitant]
     Dosage: 250 MG, Q2WKS X 8 CYCLES
     Dates: start: 20050118, end: 20050614
  10. TAXOL [Concomitant]
     Dosage: Q2WKS X 8 CYCLES
     Dates: start: 20050118, end: 20050614
  11. GEMZAR [Concomitant]
     Dosage: Q2WEEKS X 8 CYCLES
     Dates: start: 20050118, end: 20050614
  12. GEMZAR [Concomitant]
     Dosage: 1000MG, Q2WEEKS X 8 CYCLES
     Dates: start: 20050118, end: 20050614

REACTIONS (2)
  - OSTEONECROSIS [None]
  - TOOTH LOSS [None]
